FAERS Safety Report 8179715-8 (Version None)
Quarter: 2012Q1

REPORT INFORMATION
  Report Type: 
  Country: None (occurrence: None)
  Receive Date: 20120229
  Receipt Date: 20120217
  Transmission Date: 20120608
  Serious: Yes (Hospitalization)
  Sender: FDA-Public Use
  Company Number: ALK_02309_2012

PATIENT
  Sex: Female

DRUGS (4)
  1. CHOLESTEROL- AND TRIGLYCERIDE REDUCERS [Concomitant]
  2. WELLBUTRIN [Concomitant]
  3. VIVITROL [Suspect]
     Indication: ALCOHOLISM
     Dosage: (INTRAMUSCULAR)
     Route: 030
     Dates: start: 20120101
  4. CAMPRAL [Concomitant]

REACTIONS (3)
  - DYSPNOEA [None]
  - HEART RATE IRREGULAR [None]
  - CHEST DISCOMFORT [None]
